FAERS Safety Report 14356178 (Version 5)
Quarter: 2019Q2

REPORT INFORMATION
  Report Type: Report from Study
  Country: US (occurrence: US)
  Receive Date: 20180105
  Receipt Date: 20190621
  Transmission Date: 20190711
  Serious: Yes (Other)
  Sender: FDA-Public Use
  Company Number: PHEH2018US000695

PATIENT
  Sex: Female

DRUGS (1)
  1. GILENYA [Suspect]
     Active Substance: FINGOLIMOD HYDROCHLORIDE
     Indication: MULTIPLE SCLEROSIS
     Dosage: 0.5 MG, QD
     Route: 048
     Dates: start: 20170714

REACTIONS (12)
  - Diarrhoea haemorrhagic [Unknown]
  - Musculoskeletal stiffness [Unknown]
  - Weight increased [Unknown]
  - Joint stiffness [Unknown]
  - Peripheral swelling [Unknown]
  - Liver function test increased [Unknown]
  - Mucous stools [Unknown]
  - Burkitt^s lymphoma [None]
  - Abdominal pain [Unknown]
  - Increased appetite [Unknown]
  - Joint swelling [Unknown]
  - Arthralgia [Not Recovered/Not Resolved]
